FAERS Safety Report 4803613-8 (Version None)
Quarter: 2005Q4

REPORT INFORMATION
  Report Type: 
  Country: None (occurrence: None)
  Receive Date: 20051014
  Receipt Date: 20051006
  Transmission Date: 20060501
  Serious: Yes (Life-Threatening, Disabling)
  Sender: FDA-Public Use
  Company Number: 2005139485

PATIENT
  Age: 34 Year
  Sex: Male

DRUGS (3)
  1. SERTRALINE HCL [Suspect]
     Indication: DEPRESSION
     Dosage: ORAL
     Route: 048
     Dates: start: 20030916
  2. SERTRALINE HCL [Suspect]
     Indication: OBSESSIVE THOUGHTS
     Dosage: ORAL
     Route: 048
     Dates: start: 20030916
  3. RISPERIDONE [Suspect]
     Indication: PSYCHOTIC DISORDER
     Dosage: (6 MG), ORAL
     Route: 048

REACTIONS (2)
  - INSOMNIA [None]
  - INTERSTITIAL LUNG DISEASE [None]
